FAERS Safety Report 14186510 (Version 1)
Quarter: 2017Q4

REPORT INFORMATION
  Report Type: Spontaneous
  Country: BR (occurrence: BR)
  Receive Date: 20171114
  Receipt Date: 20171114
  Transmission Date: 20180321
  Serious: Yes (Other)
  Sender: FDA-Public Use
  Company Number: BR-EMD SERONO-8203164

PATIENT
  Age: 38 Year
  Sex: Female

DRUGS (2)
  1. SAIZEN [Suspect]
     Active Substance: SOMATROPIN
     Indication: WEIGHT DECREASED
     Route: 058
  2. SAIZEN [Suspect]
     Active Substance: SOMATROPIN
     Dosage: 20MG AMPOULE
     Dates: start: 201710

REACTIONS (3)
  - Off label use [Unknown]
  - Drug dose omission [Unknown]
  - Eye disorder [Unknown]

NARRATIVE: CASE EVENT DATE: 2017
